FAERS Safety Report 14312769 (Version 1)
Quarter: 2017Q4

REPORT INFORMATION
  Report Type: Spontaneous
  Country: CL (occurrence: CL)
  Receive Date: 20171221
  Receipt Date: 20171221
  Transmission Date: 20180321
  Serious: Yes (Other)
  Sender: FDA-Public Use
  Company Number: CL-BAYER-2017-242579

PATIENT

DRUGS (2)
  1. ACETYLSALICYLIC ACID({=100 MG) [Suspect]
     Active Substance: ASPIRIN
     Indication: PLACENTAL DYSPLASIA
     Dosage: UNK
     Route: 064
  2. HEPARIN [Suspect]
     Active Substance: HEPARIN SODIUM
     Indication: PLACENTAL DYSPLASIA
     Dosage: UNK

REACTIONS (3)
  - Foetal growth restriction [None]
  - Premature baby [None]
  - Foetal exposure during pregnancy [None]
